FAERS Safety Report 23416284 (Version 1)
Quarter: 2024Q1

REPORT INFORMATION
  Report Type: Spontaneous
  Country: None (occurrence: US)
  Receive Date: 20240118
  Receipt Date: 20240118
  Transmission Date: 20240409
  Serious: No
  Sender: FDA-Public Use
  Company Number: US-Harrow Eye-2151438

PATIENT
  Sex: Male

DRUGS (1)
  1. IHEEZO [Suspect]
     Active Substance: CHLOROPROCAINE HYDROCHLORIDE
     Indication: Cataract operation
     Route: 047

REACTIONS (1)
  - Retinal pigmentation [Recovering/Resolving]
